FAERS Safety Report 20981489 (Version 7)
Quarter: 2022Q3

REPORT INFORMATION
  Report Type: Spontaneous
  Country: TR (occurrence: TR)
  Receive Date: 20220620
  Receipt Date: 20220826
  Transmission Date: 20221026
  Serious: Yes (Other)
  Sender: FDA-Public Use
  Company Number: TR-PFIZER INC-202200699682

PATIENT
  Age: 68 Year
  Sex: Female

DRUGS (1)
  1. ENBREL [Suspect]
     Active Substance: ETANERCEPT
     Indication: Rheumatoid arthritis
     Dosage: 50 MG, CYCLIC (EVERY 10 DAYS)
     Dates: start: 2012

REACTIONS (8)
  - Device malfunction [Unknown]
  - Needle issue [Unknown]
  - Accidental exposure to product [Unknown]
  - Exposure via skin contact [Unknown]
  - Product administration interrupted [Unknown]
  - Pain [Recovered/Resolved]
  - Product communication issue [Unknown]
  - Off label use [Unknown]

NARRATIVE: CASE EVENT DATE: 20120101
